FAERS Safety Report 4852683-X (Version None)
Quarter: 2005Q4

REPORT INFORMATION
  Report Type: 
  Country: None (occurrence: None)
  Receive Date: 20051125
  Receipt Date: 20050609
  Transmission Date: 20060501
  Serious: Yes (Other)
  Sender: FDA-Public Use
  Company Number: 2005077098

PATIENT
  Age: 74 Year
  Sex: Female
  Weight: 74.8435 kg

DRUGS (11)
  1. TIKOSYN [Suspect]
     Indication: ATRIAL FIBRILLATION
     Dosage: 0.5 MG (0.25 MG, 2 IN 1 D); 0.75 MG (0,25 MG, 3 IN 1 D)
     Dates: start: 20050401
  2. TIKOSYN [Suspect]
     Indication: ATRIAL FIBRILLATION
     Dosage: 0.5 MG (0.25 MG, 2 IN 1 D); 0.75 MG (0,25 MG, 3 IN 1 D)
     Dates: start: 20050501
  3. . [Concomitant]
  4. LEVOTHROID [Concomitant]
  5. COUMADIN [Concomitant]
  6. ACETYLSALICYLIC ACID SRT [Concomitant]
  7. ZOCOR [Concomitant]
  8. COMBIVENT [Concomitant]
  9. FLOVENT [Concomitant]
  10. PROZAC [Concomitant]
  11. MIRALAX [Concomitant]

REACTIONS (4)
  - ATRIAL FIBRILLATION [None]
  - ATRIAL FLUTTER [None]
  - DRUG ADMINISTRATION ERROR [None]
  - EXTRASYSTOLES [None]
